FAERS Safety Report 6557284-3 (Version None)
Quarter: 2010Q1

REPORT INFORMATION
  Report Type: 
  Country: None (occurrence: None)
  Receive Date: 20100129
  Receipt Date: 20100125
  Transmission Date: 20100710
  Serious: Yes (Hospitalization)
  Sender: FDA-Public Use
  Company Number: US-BIOGENIDEC-2010BI002397

PATIENT
  Age: 57 Year
  Sex: Female
  Weight: 98 kg

DRUGS (3)
  1. AVONEX [Suspect]
     Indication: MULTIPLE SCLEROSIS
     Route: 030
     Dates: start: 20080301
  2. LIPITOR [Concomitant]
     Indication: BLOOD CHOLESTEROL INCREASED
  3. LOTREL [Concomitant]
     Indication: HYPERTENSION

REACTIONS (2)
  - ARTERIAL OCCLUSIVE DISEASE [None]
  - HEART RATE DECREASED [None]
